FAERS Safety Report 10678152 (Version 2)
Quarter: 2015Q1

REPORT INFORMATION
  Report Type: Spontaneous
  Country: JP (occurrence: None)
  Receive Date: 20141223
  Receipt Date: 20150213
  Transmission Date: 20150720
  Serious: Yes (Hospitalization)
  Sender: FDA-Public Use
  Company Number: 2014-003652

PATIENT
  Age: 65 Year
  Sex: Female

DRUGS (5)
  1. BENET(RISEDRONATE SODIUM)TABLET 17.5 MG [Suspect]
     Active Substance: RISEDRONATE SODIUM
     Indication: OSTEOPOROSIS
     Route: 048
     Dates: start: 20090502, end: 20140125
  2. CALCIUM LACTATE(CALCIUM LACTATE) [Concomitant]
  3. ROCALTROL(CALCITRIOL) [Concomitant]
  4. LOXONIN(LOXOPROFEN SODIUM) [Concomitant]
  5. ELCATONIN(ELCATONIN) [Concomitant]

REACTIONS (4)
  - Arthralgia [None]
  - Pain in extremity [None]
  - Atypical femur fracture [None]
  - Abasia [None]

NARRATIVE: CASE EVENT DATE: 20140118
